FAERS Safety Report 24964115 (Version 1)
Quarter: 2025Q1

REPORT INFORMATION
  Report Type: Spontaneous
  Country: CA (occurrence: CA)
  Receive Date: 20250213
  Receipt Date: 20250213
  Transmission Date: 20250409
  Serious: Yes (Other)
  Sender: CSL BEHRING
  Company Number: CA-BEH-2025194565

PATIENT
  Age: 57 Year
  Sex: Female

DRUGS (4)
  1. HUMAN IMMUNOGLOBULIN G [Suspect]
     Active Substance: HUMAN IMMUNOGLOBULIN G
     Indication: Primary immunodeficiency syndrome
     Dosage: 12 G, QW(1 EVERY 1 WEEKS)
     Route: 058
  2. HIZENTRA [Concomitant]
     Active Substance: HUMAN IMMUNOGLOBULIN G
     Indication: Product used for unknown indication
     Route: 065
  3. LEFLUNOMIDE [Concomitant]
     Active Substance: LEFLUNOMIDE
     Indication: Product used for unknown indication
     Route: 065
  4. HUMAN IMMUNOGLOBULIN G [Concomitant]
     Active Substance: HUMAN IMMUNOGLOBULIN G
     Indication: Product used for unknown indication
     Route: 042

REACTIONS (10)
  - Pneumonia [Unknown]
  - Bronchitis [Unknown]
  - C-reactive protein increased [Unknown]
  - Condition aggravated [Unknown]
  - Disorientation [Unknown]
  - Increased tendency to bruise [Unknown]
  - Infection [Unknown]
  - Injection site haemorrhage [Unknown]
  - Migraine [Unknown]
  - Off label use [Unknown]
